FAERS Safety Report 8534414-5 (Version None)
Quarter: 2012Q3

REPORT INFORMATION
  Report Type: 
  Country: None (occurrence: None)
  Receive Date: 20120724
  Receipt Date: 20120720
  Transmission Date: 20120928
  Serious: Yes (Death, Hospitalization)
  Sender: FDA-Public Use
  Company Number: PHHY2012US062572

PATIENT
  Age: 24 Year
  Sex: Female

DRUGS (4)
  1. BUPROPION HCL [Suspect]
     Dosage: 13.5 G, UNK
  2. TRAZODONE HYDROCHLORIDE [Concomitant]
     Dosage: 4.5 G, UNK
  3. CITALOPRAM HYDROBROMIDE [Suspect]
     Dosage: 1.8 G, UNK
  4. CLONAZEPAM [Concomitant]
     Dosage: 90 MG, UNK

REACTIONS (18)
  - MYOCLONIC EPILEPSY [None]
  - ELECTROCARDIOGRAM QT PROLONGED [None]
  - MIOSIS [None]
  - HEART RATE INCREASED [None]
  - PERIPHERAL COLDNESS [None]
  - HYPOTENSION [None]
  - PUPIL FIXED [None]
  - OVERDOSE [None]
  - CARDIOTOXICITY [None]
  - GRAND MAL CONVULSION [None]
  - FLUSHING [None]
  - VENTRICULAR TACHYCARDIA [None]
  - CONVULSION [None]
  - AREFLEXIA [None]
  - DEPRESSED LEVEL OF CONSCIOUSNESS [None]
  - UNRESPONSIVE TO STIMULI [None]
  - ELECTROCARDIOGRAM QRS COMPLEX PROLONGED [None]
  - BLOOD PRESSURE SYSTOLIC DECREASED [None]
